FAERS Safety Report 18099149 (Version 1)
Quarter: 2020Q3

REPORT INFORMATION
  Report Type: Spontaneous
  Country: JP (occurrence: JP)
  Receive Date: 20200731
  Receipt Date: 20200731
  Transmission Date: 20201103
  Serious: Yes (Hospitalization, Other)
  Sender: FDA-Public Use
  Company Number: JP-SCIEGEN-2020SCILIT00149

PATIENT
  Age: 59 Year
  Sex: Female

DRUGS (4)
  1. ROSUVASTATIN TABLETS [Suspect]
     Active Substance: ROSUVASTATIN
     Indication: HYPERLIPIDAEMIA
     Dosage: 2.5 MG/DAY
     Route: 065
  2. PREDNISOLONE. [Interacting]
     Active Substance: PREDNISOLONE
     Indication: MYOPATHY
     Route: 048
  3. TAROLIMUS [Interacting]
     Active Substance: TACROLIMUS
     Indication: ACUTE RESPIRATORY FAILURE
     Route: 065
  4. METHYLPREDNISOLONE. [Interacting]
     Active Substance: METHYLPREDNISOLONE
     Indication: MYOPATHY
     Route: 065

REACTIONS (4)
  - Acute respiratory failure [Recovered/Resolved]
  - Myopathy [Recovered/Resolved]
  - Hypercapnia [Recovered/Resolved]
  - Hypoxia [Recovered/Resolved]
